FAERS Safety Report 7864353-4 (Version None)
Quarter: 2011Q4

REPORT INFORMATION
  Report Type: 
  Country: None (occurrence: None)
  Receive Date: 20111028
  Receipt Date: 20111020
  Transmission Date: 20120403
  Serious: Yes (Hospitalization)
  Sender: FDA-Public Use
  Company Number: JP-ASTELLAS-2011JP007334

PATIENT
  Sex: Female

DRUGS (1)
  1. PROGRAF [Suspect]
     Indication: MYASTHENIA GRAVIS
     Dosage: UNK
     Route: 048
     Dates: start: 20050101

REACTIONS (1)
  - CARDIOMEGALY [None]
